FAERS Safety Report 5941800-6 (Version None)
Quarter: 2008Q4

REPORT INFORMATION
  Report Type: 
  Country: None (occurrence: None)
  Receive Date: 20081105
  Receipt Date: 20081024
  Transmission Date: 20090506
  Serious: Yes (Other)
  Sender: FDA-Public Use
  Company Number: PHHY2008AU25845

PATIENT
  Age: 30 Year
  Sex: Male

DRUGS (1)
  1. RITALIN [Suspect]

REACTIONS (5)
  - ALCOHOL POISONING [None]
  - DRUG DISPENSING ERROR [None]
  - INJURY [None]
  - MEMORY IMPAIRMENT [None]
  - SEXUAL ABUSE [None]
